FAERS Safety Report 17451336 (Version 1)
Quarter: 2020Q1

REPORT INFORMATION
  Report Type: Spontaneous
  Country: US (occurrence: US)
  Receive Date: 20200224
  Receipt Date: 20200224
  Transmission Date: 20200409
  Serious: No
  Sender: FDA-Public Use
  Company Number: US-PFIZER INC-2020079081

PATIENT
  Age: 37 Year
  Sex: Female
  Weight: 117 kg

DRUGS (3)
  1. METFORMIN [Concomitant]
     Active Substance: METFORMIN HYDROCHLORIDE
     Indication: DIABETES MELLITUS
     Dosage: 800 MG, DAILY [TAKING FOR 15 YEARS]
     Route: 048
  2. ZIPRASIDONE HCL [Suspect]
     Active Substance: ZIPRASIDONE HYDROCHLORIDE
     Indication: BIPOLAR DISORDER
     Dosage: 20 MG, UNK
     Dates: start: 2019
  3. ZIPRASIDONE HCL [Suspect]
     Active Substance: ZIPRASIDONE HYDROCHLORIDE
     Indication: SCHIZOPHRENIA
     Dosage: 50 MG, 2X/DAY
     Route: 048

REACTIONS (3)
  - Obsessive-compulsive personality disorder [Not Recovered/Not Resolved]
  - Euphoric mood [Not Recovered/Not Resolved]
  - Condition aggravated [Unknown]
